FAERS Safety Report 8054639-5 (Version None)
Quarter: 2012Q1

REPORT INFORMATION
  Report Type: 
  Country: None (occurrence: None)
  Receive Date: 20120119
  Receipt Date: 20120117
  Transmission Date: 20120608
  Serious: Yes (Other)
  Sender: FDA-Public Use
  Company Number: US-BAYER-2012-005650

PATIENT
  Age: 56 Year
  Sex: Male

DRUGS (1)
  1. GADAVIST [Suspect]
     Indication: NUCLEAR MAGNETIC RESONANCE IMAGING
     Dosage: 10 ML, UNK
     Dates: start: 20120113, end: 20120113

REACTIONS (3)
  - PRURITUS [None]
  - ERYTHEMA [None]
  - URTICARIA [None]
